FAERS Safety Report 6732709-9 (Version None)
Quarter: 2010Q2

REPORT INFORMATION
  Report Type: 
  Country: None (occurrence: None)
  Receive Date: 20100514
  Receipt Date: 20100511
  Transmission Date: 20101027
  Serious: Yes (Other)
  Sender: FDA-Public Use
  Company Number: 2010S1000256-003

PATIENT
  Age: 73 Year
  Sex: Male

DRUGS (12)
  1. PITAVASTATIN CALCIUM [Suspect]
     Indication: HYPERCHOLESTEROLAEMIA
     Dosage: 1MG PO
     Route: 048
     Dates: start: 20100302, end: 20100315
  2. DILTIAZEM HYDROCHLORIDE [Concomitant]
  3. BROTIZOLAM [Concomitant]
  4. ZOLPIDEM TARTRATE [Concomitant]
  5. MAGNESIUM OXIDE [Concomitant]
  6. ACETYLSALICYLIC ACID [Concomitant]
  7. WARFARIN SODIUM [Concomitant]
  8. FLECAINIDE ACETATE [Concomitant]
  9. EVIPROSTAT(HERBAL EXTRACTS MIXTURE) [Concomitant]
  10. HUMAN INSULIN [Concomitant]
  11. GLIBENCLAMIDE [Concomitant]
  12. NICERGOLINE [Concomitant]

REACTIONS (3)
  - MUSCULOSKELETAL PAIN [None]
  - RHABDOMYOLYSIS [None]
  - URINARY INCONTINENCE [None]
